FAERS Safety Report 20663066 (Version 3)
Quarter: 2022Q4

REPORT INFORMATION
  Report Type: Spontaneous
  Country: US (occurrence: US)
  Receive Date: 20220401
  Receipt Date: 20221223
  Transmission Date: 20230113
  Serious: No
  Sender: FDA-Public Use
  Company Number: US-BRISTOL-MYERS SQUIBB COMPANY-2022-012087

PATIENT
  Age: 67 Year
  Sex: Male
  Weight: 81.19 kg

DRUGS (1)
  1. REVLIMID [Suspect]
     Active Substance: LENALIDOMIDE
     Indication: Plasma cell myeloma
     Dosage: FREQUENCY: 3 WEEK ON AND 1 WEEK OFF
     Route: 048

REACTIONS (3)
  - Acne [Not Recovered/Not Resolved]
  - Rash [Unknown]
  - Myalgia [Not Recovered/Not Resolved]
